FAERS Safety Report 21830130 (Version 3)
Quarter: 2023Q1

REPORT INFORMATION
  Report Type: Report from Study
  Country: FR (occurrence: None)
  Receive Date: 20230106
  Receipt Date: 20230126
  Transmission Date: 20230417
  Serious: Yes (Life-Threatening, Hospitalization)
  Sender: FDA-Public Use
  Company Number: FR-ROCHE-3221036

PATIENT
  Age: 80 Year
  Sex: Male

DRUGS (10)
  1. ATEZOLIZUMAB [Suspect]
     Active Substance: ATEZOLIZUMAB
     Indication: Non-small cell lung cancer
     Dosage: LAST ADMINISTRATION:  03/NOV/2022?DATE OF LAST ADMINISTRATION OF STUDY TREATMENT WAS ON 01/DEC/2022
     Route: 041
     Dates: start: 20221020
  2. PACLITAXEL [Suspect]
     Active Substance: PACLITAXEL
     Indication: Non-small cell lung cancer
     Dosage: DATE OF LAST ADMINISTRATION OF STUDY TREATMENT WAS ON 01/DEC/2022
     Route: 065
     Dates: start: 20221020
  3. CARBOPLATIN [Suspect]
     Active Substance: CARBOPLATIN
     Indication: Non-small cell lung cancer
     Dosage: DATE OF LAST ADMINISTRATION OF STUDY TREATMENT WAS ON 01/DEC/2022
     Route: 065
     Dates: start: 20221020
  4. LANSOPRAZOLE [Concomitant]
     Active Substance: LANSOPRAZOLE
     Dates: start: 2012
  5. INNOHEP [Concomitant]
     Active Substance: TINZAPARIN SODIUM
     Dates: start: 2022
  6. INNOVAIR [Concomitant]
     Active Substance: BECLOMETHASONE DIPROPIONATE\FORMOTEROL
     Dates: start: 2022
  7. DAFALGAN [Concomitant]
     Active Substance: ACETAMINOPHEN
     Dates: start: 20221020
  8. RACECADOTRIL [Concomitant]
     Active Substance: RACECADOTRIL
     Dates: start: 20221027
  9. SMECTA [Concomitant]
     Active Substance: MONTMORILLONITE
     Dates: start: 20221027
  10. IMODIUM [Concomitant]
     Active Substance: LOPERAMIDE HYDROCHLORIDE
     Dates: start: 20221027

REACTIONS (4)
  - Anaemia [Recovered/Resolved]
  - Respiratory distress [Recovered/Resolved]
  - Malignant neoplasm progression [Recovered/Resolved]
  - Pulmonary embolism [Recovered/Resolved]

NARRATIVE: CASE EVENT DATE: 20221110
